FAERS Safety Report 8955624 (Version 2)
Quarter: 2012Q4

REPORT INFORMATION
  Report Type: 
  Country: JP (occurrence: JP)
  Receive Date: 20121207
  Receipt Date: 20121212
  Transmission Date: 20130627
  Serious: Yes (Death)
  Sender: FDA-Public Use
  Company Number: JP-ROCHE-1163409

PATIENT
  Age: 15 Year
  Sex: Male

DRUGS (8)
  1. CELLCEPT [Suspect]
     Indication: GRAFT VERSUS HOST DISEASE
     Route: 048
  2. PREDNISOLONE [Suspect]
     Indication: GRAFT VERSUS HOST DISEASE
     Route: 065
  3. PREDNISOLONE [Suspect]
     Indication: GRAFT VERSUS HOST DISEASE
     Route: 065
  4. TACROLIMUS [Concomitant]
     Indication: PROPHYLAXIS AGAINST GRAFT VERSUS HOST DISEASE
     Route: 041
  5. METHOTREXATE [Concomitant]
     Indication: PROPHYLAXIS AGAINST GRAFT VERSUS HOST DISEASE
     Dosage: day+1:15mg/m2
     Route: 042
  6. METHOTREXATE [Concomitant]
     Indication: PROPHYLAXIS AGAINST GRAFT VERSUS HOST DISEASE
     Dosage: day+3,6,11:10mg/m2
     Route: 042
  7. CICLOSPORIN [Concomitant]
     Indication: GRAFT VERSUS HOST DISEASE
     Route: 065
  8. MELPHALAN [Concomitant]
     Route: 065

REACTIONS (3)
  - Pulmonary mycosis [Fatal]
  - Diabetes mellitus [Unknown]
  - Disseminated intravascular coagulation [Fatal]
